FAERS Safety Report 7249671-5 (Version None)
Quarter: 2011Q1

REPORT INFORMATION
  Report Type: 
  Country: None (occurrence: None)
  Receive Date: 20110128
  Receipt Date: 20110118
  Transmission Date: 20110831
  Serious: Yes (Hospitalization)
  Sender: FDA-Public Use
  Company Number: CH-JNJFOC-20110105209

PATIENT
  Sex: Male
  Weight: 1.49 kg

DRUGS (6)
  1. CAELYX [Suspect]
     Indication: DRUG EXPOSURE DURING PREGNANCY
     Route: 064
  2. ONDANSETRON HYDROCHLORIDE [Suspect]
     Indication: DRUG EXPOSURE DURING PREGNANCY
     Route: 064
  3. SOLU-MEDROL [Suspect]
     Indication: DRUG EXPOSURE DURING PREGNANCY
     Route: 064
  4. NEUPOGEN [Suspect]
     Indication: DRUG EXPOSURE DURING PREGNANCY
     Route: 064
  5. IFOSFAMIDE [Suspect]
     Indication: DRUG EXPOSURE DURING PREGNANCY
     Route: 064
  6. MESNA [Suspect]
     Indication: DRUG EXPOSURE DURING PREGNANCY
     Route: 064

REACTIONS (3)
  - FOETAL GROWTH RESTRICTION [None]
  - PREMATURE LABOUR [None]
  - DRUG EXPOSURE DURING PREGNANCY [None]
